FAERS Safety Report 20327778 (Version 1)
Quarter: 2022Q1

REPORT INFORMATION
  Report Type: Report from Study
  Country: RU (occurrence: RU)
  Receive Date: 20220112
  Receipt Date: 20220112
  Transmission Date: 20220423
  Serious: Yes (Hospitalization)
  Sender: FDA-Public Use
  Company Number: RU-ABBVIE-22K-251-4230317-00

PATIENT
  Age: 66 Year
  Sex: Female
  Weight: 62 kg

DRUGS (6)
  1. RINVOQ [Suspect]
     Active Substance: UPADACITINIB
     Indication: Rheumatoid arthritis
     Dosage: DAILY
     Route: 048
     Dates: start: 20210607, end: 202107
  2. RINVOQ [Suspect]
     Active Substance: UPADACITINIB
     Dosage: DAILY
     Route: 048
     Dates: start: 2021
  3. METHOTREXATE [Concomitant]
     Active Substance: METHOTREXATE
     Indication: Rheumatoid arthritis
     Dosage: WEEKLY
     Route: 058
     Dates: start: 20120410
  4. CALCEMIN ADVANCE [Concomitant]
     Active Substance: CALCIUM CARBONATE\MAGNESIUM OXIDE\PREVITAMIN D3\SODIUM BORATE\ZINC OXIDE
     Indication: Prophylaxis
     Dosage: DAILY
     Route: 048
     Dates: start: 20210607
  5. VITAMIN D3 [Concomitant]
     Active Substance: CHOLECALCIFEROL
     Indication: Prophylaxis
     Dosage: DAILY
     Route: 048
     Dates: start: 20210607
  6. UMIFENOVIRUM [Concomitant]
     Indication: COVID-19
     Dosage: TWICE DAILY
     Route: 048
     Dates: start: 20210713, end: 20210722

REACTIONS (1)
  - COVID-19 [Recovered/Resolved]

NARRATIVE: CASE EVENT DATE: 20210713
